FAERS Safety Report 21779304 (Version 3)
Quarter: 2023Q2

REPORT INFORMATION
  Report Type: Spontaneous
  Country: US (occurrence: US)
  Receive Date: 20221226
  Receipt Date: 20230508
  Transmission Date: 20230721
  Serious: Yes (Other)
  Sender: FDA-Public Use
  Company Number: US-GILEAD-2022-0610359

PATIENT
  Age: 45 Year
  Sex: Female

DRUGS (3)
  1. STRIBILD [Suspect]
     Active Substance: COBICISTAT\ELVITEGRAVIR\EMTRICITABINE\TENOFOVIR DISOPROXIL FUMARATE
     Indication: HIV infection
     Dosage: UNK
     Route: 048
     Dates: start: 20150130, end: 20170324
  2. STRIBILD [Suspect]
     Active Substance: COBICISTAT\ELVITEGRAVIR\EMTRICITABINE\TENOFOVIR DISOPROXIL FUMARATE
     Dosage: UNK
     Route: 065
     Dates: start: 20120827, end: 20180101
  3. TRUVADA [Suspect]
     Active Substance: EMTRICITABINE\TENOFOVIR DISOPROXIL FUMARATE
     Indication: HIV infection
     Dosage: UNK
     Route: 065
     Dates: start: 20060101, end: 20071231

REACTIONS (4)
  - Multiple fractures [Unknown]
  - Osteoporosis [Not Recovered/Not Resolved]
  - Jaw fracture [Recovered/Resolved]
  - Bone density decreased [Unknown]

NARRATIVE: CASE EVENT DATE: 20060313
